FAERS Safety Report 20176850 (Version 1)
Quarter: 2021Q4

REPORT INFORMATION
  Report Type: Report from Study
  Country: DE (occurrence: DE)
  Receive Date: 20211213
  Receipt Date: 20211213
  Transmission Date: 20220303
  Serious: Yes (Death, Other)
  Sender: FDA-Public Use
  Company Number: DE-INSUD PHARMA-2111DE03147

PATIENT

DRUGS (1)
  1. NUVESSA [Suspect]
     Active Substance: METRONIDAZOLE
     Indication: Product used for unknown indication
     Dosage: UNKNOWN
     Route: 065

REACTIONS (4)
  - Drug-induced liver injury [Unknown]
  - Acute hepatic failure [Unknown]
  - Multiple organ dysfunction syndrome [Fatal]
  - Cerebrovascular accident [Unknown]
